FAERS Safety Report 5476150-8 (Version None)
Quarter: 2007Q4

REPORT INFORMATION
  Report Type: 
  Country: None (occurrence: None)
  Receive Date: 20071003
  Receipt Date: 20070927
  Transmission Date: 20080405
  Serious: Yes (Hospitalization)
  Sender: FDA-Public Use
  Company Number: NSADSS2003005114

PATIENT
  Sex: Female
  Weight: 116.12 kg

DRUGS (8)
  1. ORTHO EVRA [Suspect]
     Indication: CONTRACEPTION
     Route: 062
     Dates: start: 20020701
  2. EFFEXOR [Concomitant]
     Indication: DEPRESSION
  3. NEXIUM [Concomitant]
     Indication: PEPTIC ULCER
  4. METFORMIN HCL [Concomitant]
     Indication: POLYCYSTIC OVARIES
     Route: 065
     Dates: start: 20020801
  5. BENTYL [Concomitant]
     Indication: IRRITABLE BOWEL SYNDROME
  6. PLAVIX [Concomitant]
     Indication: DRUG USE FOR UNKNOWN INDICATION
  7. LOMOTIL [Concomitant]
     Indication: DRUG USE FOR UNKNOWN INDICATION
  8. ZELNORM [Concomitant]

REACTIONS (3)
  - CEREBRAL HAEMORRHAGE [None]
  - GRAND MAL CONVULSION [None]
  - SUPERIOR SAGITTAL SINUS THROMBOSIS [None]
